FAERS Safety Report 23225693 (Version 2)
Quarter: 2023Q4

REPORT INFORMATION
  Report Type: Spontaneous
  Country: DE (occurrence: DE)
  Receive Date: 20231124
  Receipt Date: 20231208
  Transmission Date: 20240110
  Serious: Yes (Hospitalization, Other)
  Sender: FDA-Public Use
  Company Number: None

PATIENT
  Age: 66 Year
  Sex: Male
  Weight: 80 kg

DRUGS (1)
  1. ROFLUMILAST [Suspect]
     Active Substance: ROFLUMILAST
     Indication: Chronic obstructive pulmonary disease
     Route: 065

REACTIONS (3)
  - Melaena [Not Recovered/Not Resolved]
  - Gastroduodenal ulcer [Not Recovered/Not Resolved]
  - Gastrooesophageal reflux disease [Not Recovered/Not Resolved]

NARRATIVE: CASE EVENT DATE: 20221107
